FAERS Safety Report 9643174 (Version 2)
Quarter: 2013Q4

REPORT INFORMATION
  Report Type: Spontaneous
  Country: CA (occurrence: CA)
  Receive Date: 20131024
  Receipt Date: 20131024
  Transmission Date: 20140711
  Serious: Yes (Other)
  Sender: FDA-Public Use
  Company Number: CA-PFIZER INC-2013295007

PATIENT
  Sex: Male

DRUGS (1)
  1. CHAMPIX [Suspect]
     Indication: SMOKING CESSATION THERAPY
     Dosage: UNK
     Dates: start: 201302

REACTIONS (9)
  - Schizophrenia [Not Recovered/Not Resolved]
  - Abnormal dreams [Not Recovered/Not Resolved]
  - Memory impairment [Unknown]
  - Off label use [Unknown]
  - Pre-existing condition improved [Recovered/Resolved]
  - Educational problem [Recovered/Resolved]
  - Feeling of relaxation [Recovered/Resolved]
  - Somnolence [Recovered/Resolved]
  - Therapeutic response unexpected [Recovered/Resolved]
